FAERS Safety Report 10673430 (Version 2)
Quarter: 2014Q4

REPORT INFORMATION
  Report Type: Spontaneous
  Country: FR (occurrence: FR)
  Receive Date: 20141224
  Receipt Date: 20141224
  Transmission Date: 20150529
  Serious: Yes (Life-Threatening, Hospitalization, Other)
  Sender: FDA-Public Use
  Company Number: FR-009507513-2003-10-1069

PATIENT
  Age: 28 Month
  Sex: Male

DRUGS (2)
  1. CLARITYNE [Suspect]
     Active Substance: LORATADINE
     Indication: RASH PRURITIC
     Dosage: DOSE: UNKNOWN, DURATION: 5 DAY(S)
     Route: 048
     Dates: start: 20030815, end: 20030819
  2. CLAMOXYL [Concomitant]
     Active Substance: AMOXICILLIN\CLAVULANIC ACID
     Indication: PRODUCT USED FOR UNKNOWN INDICATION
     Dosage: DOSE: UNKNOWN DURATION: 5 DAY(S)
     Route: 048
     Dates: start: 20030815, end: 20030819

REACTIONS (7)
  - Haemolytic anaemia [Recovered/Resolved]
  - Decreased appetite [Recovered/Resolved]
  - Pyrexia [Recovered/Resolved]
  - Acute kidney injury [Recovered/Resolved]
  - Diarrhoea [Recovered/Resolved]
  - Purpura [Recovered/Resolved]
  - Vomiting [Recovered/Resolved]
